FAERS Safety Report 10994872 (Version 1)
Quarter: 2015Q2

REPORT INFORMATION
  Report Type: Spontaneous
  Country: US (occurrence: None)
  Receive Date: 20150406
  Receipt Date: 20150406
  Transmission Date: 20150821
  Serious: Yes (Other)
  Sender: FDA-Public Use
  Company Number: None

PATIENT
  Age: 58 Year
  Sex: Female
  Weight: 48.54 kg

DRUGS (7)
  1. PANTOPRAZOLE [Concomitant]
     Active Substance: PANTOPRAZOLE SODIUM
  2. IRBESARTAN. [Concomitant]
     Active Substance: IRBESARTAN
  3. TURMERIC [Concomitant]
     Active Substance: TURMERIC
  4. PSYLLIUM HUSKS [Concomitant]
  5. FLAX [Concomitant]
  6. IRBESARTAN. [Suspect]
     Active Substance: IRBESARTAN
     Indication: HYPERTENSION
     Dosage: 1 TABLET  ONCE DAILY TAKEN BY MOUTH
     Route: 048
     Dates: start: 20150403, end: 20150403
  7. MULTIVITAMINS [Concomitant]
     Active Substance: VITAMINS

REACTIONS (11)
  - Oral discomfort [None]
  - Product taste abnormal [None]
  - Malaise [None]
  - Product substitution issue [None]
  - Burning sensation [None]
  - Gastrooesophageal reflux disease [None]
  - Glossodynia [None]
  - Dyspnoea [None]
  - Product quality issue [None]
  - Condition aggravated [None]
  - Gastrointestinal disorder [None]

NARRATIVE: CASE EVENT DATE: 20150403
